FAERS Safety Report 6381762-3 (Version None)
Quarter: 2009Q3

REPORT INFORMATION
  Report Type: 
  Country: None (occurrence: None)
  Receive Date: 20090930
  Receipt Date: 20070709
  Transmission Date: 20100115
  Serious: Yes (Other)
  Sender: FDA-Public Use
  Company Number: US-ASTRAZENECA-2006UW24019

PATIENT
  Age: 58 Year
  Sex: Male
  Weight: 124.7 kg

DRUGS (22)
  1. SEROQUEL [Suspect]
     Indication: SCHIZOPHRENIA
     Route: 048
     Dates: start: 19970101
  2. SEROQUEL [Suspect]
     Indication: DEPRESSION
     Route: 048
     Dates: start: 19970101
  3. SEROQUEL [Suspect]
     Dosage: 25 MG-200 MG
     Route: 048
     Dates: start: 19980707
  4. SEROQUEL [Suspect]
     Dosage: 25 MG-200 MG
     Route: 048
     Dates: start: 19980707
  5. CLOZARIL [Concomitant]
  6. HALDOL [Concomitant]
  7. NAVANE [Concomitant]
  8. RISPERDAL [Concomitant]
  9. STELAZINE [Concomitant]
  10. ZYPREXA [Concomitant]
     Dosage: 10MG-20MG
     Route: 048
     Dates: start: 19980701
  11. PAXIL [Concomitant]
     Dosage: 30 MG-40 MG
     Route: 048
     Dates: start: 19980601
  12. TEMAZEPAM [Concomitant]
     Dates: start: 19980601
  13. BUSPAR [Concomitant]
     Route: 048
     Dates: start: 19980701
  14. XANAX [Concomitant]
     Dates: start: 20010401
  15. AMBIEN [Concomitant]
     Dates: start: 20010401
  16. IMDUR [Concomitant]
     Dates: start: 19990101
  17. NORVASC [Concomitant]
     Indication: CARDIAC DISORDER
     Dates: start: 19990101
  18. NORVASC [Concomitant]
     Indication: BLOOD PRESSURE
     Dates: start: 19990101
  19. HYTRIN [Concomitant]
     Indication: BLOOD PRESSURE
     Dates: start: 19950101
  20. HYTRIN [Concomitant]
     Indication: HYPERTENSION
     Dates: start: 19950101
  21. LIPITOR [Concomitant]
     Dates: start: 19990101
  22. ZYLOPRIM [Concomitant]
     Dates: start: 19990101

REACTIONS (5)
  - DIABETES MELLITUS [None]
  - DIABETIC KETOACIDOSIS [None]
  - DIABETIC NEUROPATHY [None]
  - INJURY [None]
  - TYPE 2 DIABETES MELLITUS [None]
